FAERS Safety Report 5169765-8 (Version None)
Quarter: 2006Q4

REPORT INFORMATION
  Report Type: 
  Country: None (occurrence: None)
  Receive Date: 20061212
  Receipt Date: 20061130
  Transmission Date: 20070319
  Serious: Yes (Life-Threatening, Hospitalization)
  Sender: FDA-Public Use
  Company Number: DE-JNJFOC-20061200007

PATIENT
  Sex: Female
  Weight: 65 kg

DRUGS (3)
  1. REMINYL [Suspect]
     Indication: DEMENTIA ALZHEIMER'S TYPE
     Route: 048
     Dates: start: 20051201, end: 20060701
  2. REBOXETIN [Concomitant]
     Indication: DEPRESSION
     Route: 048
     Dates: start: 20051201, end: 20060701
  3. INSIDON [Concomitant]

REACTIONS (1)
  - CHOLESTASIS [None]
